FAERS Safety Report 25845885 (Version 1)
Quarter: 2025Q3

REPORT INFORMATION
  Report Type: Spontaneous
  Country: US (occurrence: US)
  Receive Date: 20250925
  Receipt Date: 20250925
  Transmission Date: 20251020
  Serious: Yes (Other)
  Sender: RANBAXY
  Company Number: US-SUN PHARMACEUTICAL INDUSTRIES LTD-2025R1-528377

PATIENT
  Age: 47 Year
  Sex: Male

DRUGS (2)
  1. AMLODIPINE [Interacting]
     Active Substance: AMLODIPINE BESYLATE
     Indication: Hypertension
     Dosage: 10 MILLIGRAM, DAILY
     Route: 065
  2. ATORVASTATIN [Interacting]
     Active Substance: ATORVASTATIN
     Indication: Hyperlipidaemia
     Dosage: 40 MILLIGRAM, DAILY
     Route: 065

REACTIONS (2)
  - Drug interaction [Unknown]
  - Oedema peripheral [Unknown]
